FAERS Safety Report 7237767 (Version 2)
Quarter: 2014Q1

REPORT INFORMATION
  Report Type: Spontaneous
  Country: US (occurrence: None)
  Receive Date: 20091217
  Receipt Date: 20140220
  Transmission Date: 20141002
  Serious: Yes (Other)
  Sender: FDA-Public Use
  Company Number: 2009S1008773

PATIENT
  Age: 63 Year
  Sex: Female
  Weight: 86.18 kg

DRUGS (3)
  1. FLEET PHOSPHO-SODA [Suspect]
     Indication: COLONOSCOPY
     Dosage: 90 ML, 2 IN 24 HOURS, ORAL
     Route: 048
     Dates: start: 20080706, end: 20080706
  2. LISINOPRIL/HCTZ (YDROCLOROTHIAZIDE), LISINOPRIL) [Concomitant]
  3. ASPIRIN (ACETYLSALICYLIC ACID) [Concomitant]

REACTIONS (3)
  - Renal failure acute [None]
  - Renal failure acute [None]
  - Renal failure chronic [None]
